FAERS Safety Report 5452674-4 (Version None)
Quarter: 2007Q3

REPORT INFORMATION
  Report Type: 
  Country: None (occurrence: None)
  Receive Date: 20070914
  Receipt Date: 20070911
  Transmission Date: 20080115
  Serious: Yes (Death)
  Sender: FDA-Public Use
  Company Number: US-GENENTECH-242824

PATIENT
  Sex: Male
  Weight: 92.517 kg

DRUGS (6)
  1. BEVACIZUMAB [Suspect]
     Indication: OESOPHAGEAL CARCINOMA
     Dosage: 15 MG/M2, UNK
     Route: 042
     Dates: start: 20070226
  2. ERLOTINIB [Suspect]
     Indication: OESOPHAGEAL CARCINOMA
     Dosage: 100 MG, QD
     Route: 048
     Dates: start: 20070226
  3. PACLITAXEL [Concomitant]
     Indication: OESOPHAGEAL CARCINOMA
     Dosage: 200 MG/M2, UNK
     Dates: start: 20070226
  4. CARBOPLATIN [Concomitant]
     Indication: OESOPHAGEAL CARCINOMA
     Dosage: 5 AUC, UNK
     Route: 042
     Dates: start: 20070226
  5. FLUOROURACIL [Concomitant]
     Indication: OESOPHAGEAL CARCINOMA
     Dosage: 225 MG/M2, UNK
     Dates: start: 20070226
  6. RADIATION THERAPY [Concomitant]
     Indication: OESOPHAGEAL CARCINOMA
     Dosage: 1.8 GY, UNK
     Dates: start: 20070226

REACTIONS (2)
  - DEATH [None]
  - OESOPHAGEAL CARCINOMA [None]
